FAERS Safety Report 5090872-2 (Version None)
Quarter: 2006Q3

REPORT INFORMATION
  Report Type: 
  Country: None (occurrence: None)
  Receive Date: 20060823
  Receipt Date: 20060810
  Transmission Date: 20061208
  Serious: Yes (Death, Hospitalization)
  Sender: FDA-Public Use
  Company Number: 2006098968

PATIENT
  Age: 61 Year
  Sex: Female

DRUGS (19)
  1. SUTENT [Suspect]
     Indication: RENAL CELL CARCINOMA STAGE UNSPECIFIED
     Dosage: SEE IMAGE, ORAL
     Route: 048
     Dates: start: 20060421
  2. SUTENT [Suspect]
     Indication: RENAL CELL CARCINOMA STAGE UNSPECIFIED
     Dosage: SEE IMAGE, ORAL
     Route: 048
     Dates: start: 20060613
  3. PREDNISOLONE [Concomitant]
  4. ALPRAZOLAM [Concomitant]
  5. ZOPICLONE (ZOPICLONE) [Concomitant]
  6. OMEPRAZOLE [Concomitant]
  7. ACENOCOUMAROL (ACENOCOUMAROL) [Concomitant]
  8. ATENOLOL [Concomitant]
  9. TRIMEBUTINE (TRIMEBUTINE) [Concomitant]
  10. LACTULOSE [Concomitant]
  11. ACETAMINOPHEN [Concomitant]
  12. ACETAMINOPHEN W/ PROPOXYPHENE HCL [Concomitant]
  13. DOMPERIDONE (DOMPERIDONE) [Concomitant]
  14. ACETAMINOPHEN W/ CODEINE [Concomitant]
  15. ACETAMINOPHEN [Concomitant]
  16. MACROGOL (MACROGOL) [Concomitant]
  17. TRAMADOL HCL [Concomitant]
  18. PHLOROGLUCINOL (PHLOROGLUCINOL) [Concomitant]
  19. SODIUM BICARBONATE IN PLASTIC CONTAINER [Concomitant]

REACTIONS (1)
  - CEREBRAL HAEMATOMA [None]
